FAERS Safety Report 6662902-5 (Version None)
Quarter: 2010Q1

REPORT INFORMATION
  Report Type: 
  Country: None (occurrence: None)
  Receive Date: 20100323
  Receipt Date: 20091120
  Transmission Date: 20100710
  Serious: No
  Sender: FDA-Public Use
  Company Number: 2009US000046

PATIENT
  Sex: Female

DRUGS (1)
  1. ENTEREG [Suspect]
     Indication: POSTOPERATIVE ILEUS
     Dosage: 12 MG; PO
     Route: 048
     Dates: start: 20090101

REACTIONS (1)
  - HAEMATOCHEZIA [None]
